FAERS Safety Report 26060277 (Version 1)
Quarter: 2025Q4

REPORT INFORMATION
  Report Type: Spontaneous
  Country: US (occurrence: None)
  Receive Date: 20251118
  Receipt Date: 20251118
  Transmission Date: 20260118
  Serious: Yes (Other)
  Sender: FDA-CTU
  Company Number: None

PATIENT
  Age: 74 Year
  Sex: Male
  Weight: 93.6 kg

DRUGS (1)
  1. ERLEADA [Suspect]
     Active Substance: APALUTAMIDE
     Indication: Prostate cancer
     Dates: start: 20230902, end: 20251117

REACTIONS (5)
  - Interstitial lung disease [None]
  - Eosinophilia [None]
  - Lung consolidation [None]
  - Bronchiectasis [None]
  - Superinfection [None]

NARRATIVE: CASE EVENT DATE: 20251117
